FAERS Safety Report 8413637-X (Version None)
Quarter: 2012Q2

REPORT INFORMATION
  Report Type: 
  Country: None (occurrence: None)
  Receive Date: 20120605
  Receipt Date: 20120531
  Transmission Date: 20120825
  Serious: Yes (Hospitalization)
  Sender: FDA-Public Use
  Company Number: PHHY2012DE047003

PATIENT
  Sex: Female

DRUGS (4)
  1. GILENYA [Suspect]
     Indication: MULTIPLE SCLEROSIS
     Dosage: 0.5 MG, QD
     Route: 048
     Dates: start: 20111101, end: 20120401
  2. GILENYA [Interacting]
     Dosage: 0.5 MG, QD
     Route: 048
     Dates: start: 20120501
  3. FLUOXETINE [Interacting]
     Indication: DEPRESSION
     Dosage: UNK UKN, UNK
     Route: 048
  4. CORTISONE ACETATE [Interacting]
     Indication: MULTIPLE SCLEROSIS RELAPSE
     Dosage: UNK UKN, UNK
     Dates: start: 20120401

REACTIONS (4)
  - ELECTROCARDIOGRAM QT PROLONGED [None]
  - MULTIPLE SCLEROSIS RELAPSE [None]
  - BRADYCARDIA [None]
  - DRUG INTERACTION [None]
